FAERS Safety Report 9605217 (Version 2)
Quarter: 2013Q4

REPORT INFORMATION
  Report Type: Spontaneous
  Country: JP (occurrence: JP)
  Receive Date: 20131008
  Receipt Date: 20131017
  Transmission Date: 20140711
  Serious: Yes (Hospitalization, Other)
  Sender: FDA-Public Use
  Company Number: JP-009507513-1310JPN003279

PATIENT
  Age: 66 Year
  Sex: Male

DRUGS (24)
  1. EMEND [Suspect]
     Indication: PROPHYLAXIS OF NAUSEA AND VOMITING
     Dosage: 80 MG, QD
     Route: 048
     Dates: start: 20110907
  2. EMEND [Suspect]
     Dosage: 80 MG, QD
     Route: 048
  3. EMEND [Suspect]
     Dosage: 80 MG, QD
     Route: 048
  4. EMEND [Suspect]
     Dosage: 80 MG, QD
     Route: 048
  5. EMEND [Suspect]
     Dosage: 80 MG, QD
     Route: 048
  6. EMEND [Suspect]
     Dosage: 80 MG, QD
     Route: 048
     Dates: end: 20111116
  7. EMEND [Suspect]
     Dosage: 125 MG, QD (FIRST CYCLE FIRST DAY)
     Route: 048
     Dates: start: 20130717, end: 20130717
  8. EMEND [Suspect]
     Dosage: 80 MG, QD, (FIRST CYCLE 2ND AND 3RD DAY)
     Route: 048
     Dates: start: 20130718, end: 20130720
  9. EMEND [Suspect]
     Dosage: 125 MG, QD (SECOND CYCLE- 1ST DAY)
     Route: 048
     Dates: start: 20130731, end: 20130731
  10. EMEND [Suspect]
     Dosage: 80 MG, QD (SEOND CYCLE 2ND AND 3RD DAY)
     Route: 048
     Dates: start: 20130801, end: 20130802
  11. FLUOROURACIL [Concomitant]
     Dosage: UNK
     Dates: start: 20130717, end: 201307
  12. FLUOROURACIL [Concomitant]
     Dosage: 650 MG
     Dates: start: 20130731
  13. FLUOROURACIL [Concomitant]
     Dosage: 4000 MG
     Dates: start: 20130731
  14. ISOVORIN [Concomitant]
     Dosage: UNK
     Dates: start: 20130717, end: 201307
  15. ISOVORIN [Concomitant]
     Dosage: 325 MG
     Dates: start: 20130731
  16. IRINOTECAN HYDROCHLORIDE HYDRATE [Concomitant]
     Dosage: UNK
     Dates: start: 20130717, end: 201307
  17. IRINOTECAN HYDROCHLORIDE HYDRATE [Concomitant]
     Dosage: 240 MG
     Dates: start: 20130731
  18. BEVACIZUMAB [Concomitant]
     Dosage: UNK
     Dates: start: 20130717, end: 201307
  19. BEVACIZUMAB [Concomitant]
     Dosage: UNK
     Dates: start: 20130731
  20. DECADRON (DEXAMETHASONE SODIUM PHOSPHATE) [Concomitant]
     Dosage: UNK
     Dates: start: 20130731
  21. ZOFRAN [Concomitant]
     Dosage: UNK
     Dates: start: 20130731
  22. HALCION [Concomitant]
     Dosage: UNK
     Dates: start: 20110131
  23. URSODIOL [Concomitant]
     Dosage: UNK
     Dates: start: 20120831
  24. BIOFERMIN R [Concomitant]
     Dosage: UNK
     Dates: start: 20120523

REACTIONS (1)
  - Loss of consciousness [Recovered/Resolved]
